FAERS Safety Report 10675194 (Version 1)
Quarter: 2014Q4

REPORT INFORMATION
  Report Type: Spontaneous
  Country: US (occurrence: US)
  Receive Date: 20141224
  Receipt Date: 20141224
  Transmission Date: 20150529
  Serious: Yes (Hospitalization)
  Sender: FDA-Public Use
  Company Number: PHHY2014US165267

PATIENT
  Age: 35 Month
  Sex: Female

DRUGS (2)
  1. CARBOPLATIN. [Suspect]
     Active Substance: CARBOPLATIN
     Indication: OPTIC GLIOMA
     Dosage: 175 MG/M2/DOSE, FOR 4 WEEKS
     Route: 065
  2. VINCRISTINE [Suspect]
     Active Substance: VINCRISTINE
     Indication: OPTIC GLIOMA
     Dosage: 1.5 MG/M2/DOSE, FOR 3 WEEKS
     Route: 065

REACTIONS (10)
  - Haemolytic anaemia [Unknown]
  - Abdominal pain [Unknown]
  - Haemoglobin decreased [Recovered/Resolved]
  - Nucleated red cells [Unknown]
  - Chromaturia [Unknown]
  - Back pain [Unknown]
  - Pallor [Unknown]
  - Red blood cell spherocytes present [Unknown]
  - Polychromasia [Unknown]
  - Anisocytosis [Unknown]
